FAERS Safety Report 24407402 (Version 5)
Quarter: 2025Q4

REPORT INFORMATION
  Report Type: Report from Study
  Country: US (occurrence: US)
  Receive Date: 20241007
  Receipt Date: 20251231
  Transmission Date: 20260118
  Serious: No
  Sender: PFIZER
  Company Number: US-PFIZER INC-PV202400129265

PATIENT
  Age: 47 Year
  Sex: Female

DRUGS (1)
  1. IBRANCE [Suspect]
     Active Substance: PALBOCICLIB
     Indication: Breast cancer female
     Dosage: UNK

REACTIONS (8)
  - Diarrhoea [Recovering/Resolving]
  - Full blood count decreased [Unknown]
  - Nausea [Recovering/Resolving]
  - Stomatitis [Unknown]
  - Fatigue [Unknown]
  - White blood cell count decreased [Unknown]
  - Platelet count decreased [Unknown]
  - Alopecia [Recovering/Resolving]
